FAERS Safety Report 8592891-8 (Version None)
Quarter: 2012Q3

REPORT INFORMATION
  Report Type: 
  Country: None (occurrence: None)
  Receive Date: 20120814
  Receipt Date: 20120806
  Transmission Date: 20120928
  Serious: Yes (Hospitalization)
  Sender: FDA-Public Use
  Company Number: GB-ROCHE-1098376

PATIENT
  Sex: Female
  Weight: 64.85 kg

DRUGS (7)
  1. METOCLOPRAMIDE [Concomitant]
     Dates: start: 20120724
  2. ACETAMINOPHEN [Concomitant]
     Dates: start: 20120804
  3. LETROZOLE [Concomitant]
     Dates: start: 20120804
  4. ADCAL-D3 [Concomitant]
     Dosage: DOSE: 1.5G/400
     Dates: start: 20120804
  5. HERCEPTIN [Suspect]
     Indication: BREAST CANCER
     Route: 042
     Dates: start: 20120724
  6. BENDROFLUMETHIAZID [Concomitant]
     Dates: start: 20120804
  7. PERTUZUMAB [Suspect]
     Indication: BREAST CANCER
     Route: 042
     Dates: start: 20120724

REACTIONS (1)
  - COLITIS [None]
